FAERS Safety Report 8996196 (Version 1)
Quarter: 2013Q1

REPORT INFORMATION
  Report Type: Spontaneous
  Country: FR (occurrence: FR)
  Receive Date: 20130103
  Receipt Date: 20130103
  Transmission Date: 20140127
  Serious: Yes (Hospitalization)
  Sender: FDA-Public Use
  Company Number: FR-US-EMD SERONO, INC.-7184833

PATIENT
  Sex: Female

DRUGS (2)
  1. GONAL-F [Suspect]
     Indication: OVULATION INDUCTION
     Route: 058
  2. CETROTIDE [Suspect]
     Indication: OVULATION INDUCTION
     Route: 058

REACTIONS (1)
  - Invasive ductal breast carcinoma [Not Recovered/Not Resolved]
